FAERS Safety Report 7569285-7 (Version None)
Quarter: 2011Q2

REPORT INFORMATION
  Report Type: 
  Country: None (occurrence: None)
  Receive Date: 20110623
  Receipt Date: 20110614
  Transmission Date: 20111010
  Serious: Yes (Hospitalization)
  Sender: FDA-Public Use
  Company Number: BR-ASTRAZENECA-2010SE53772

PATIENT
  Age: 43 Year
  Sex: Female
  Weight: 70 kg

DRUGS (21)
  1. SEROQUEL [Suspect]
     Route: 048
     Dates: start: 20100901, end: 20101101
  2. SEROQUEL [Suspect]
     Route: 048
     Dates: start: 20101101, end: 20110301
  3. SEROQUEL [Suspect]
     Route: 048
     Dates: start: 20101101, end: 20110301
  4. SEROQUEL [Suspect]
     Route: 048
  5. ZOLPIDEM [Concomitant]
     Indication: DEPRESSION
     Route: 048
     Dates: start: 20100501
  6. SEROQUEL [Suspect]
     Route: 048
     Dates: start: 20110301
  7. SEROQUEL [Suspect]
     Indication: DEPRESSION
     Route: 048
     Dates: start: 20100601, end: 20100901
  8. SEROQUEL [Suspect]
     Indication: NERVOUSNESS
     Route: 048
     Dates: start: 20100601, end: 20100901
  9. ZOLPIDEM [Concomitant]
     Indication: OBSESSIVE-COMPULSIVE DISORDER
     Route: 048
     Dates: start: 20100501
  10. ZOLPIDEM [Concomitant]
     Indication: NERVOUSNESS
     Route: 048
     Dates: start: 20100501
  11. SEROQUEL [Suspect]
     Indication: OBSESSIVE-COMPULSIVE DISORDER
     Route: 048
     Dates: start: 20100601, end: 20100901
  12. SEROQUEL [Suspect]
     Route: 048
     Dates: start: 20101101, end: 20110301
  13. CLONAZEPAM [Concomitant]
     Indication: DEPRESSION
     Route: 048
     Dates: start: 20100501
  14. CLONAZEPAM [Concomitant]
     Indication: OBSESSIVE-COMPULSIVE DISORDER
     Route: 048
     Dates: start: 20100501
  15. SEROQUEL [Suspect]
     Route: 048
  16. SEROQUEL [Suspect]
     Route: 048
     Dates: start: 20100901, end: 20101101
  17. SEROQUEL [Suspect]
     Route: 048
     Dates: start: 20110301
  18. CLONAZEPAM [Concomitant]
     Indication: NERVOUSNESS
     Route: 048
     Dates: start: 20100501
  19. SEROQUEL [Suspect]
     Route: 048
     Dates: start: 20100901, end: 20101101
  20. SEROQUEL [Suspect]
     Route: 048
     Dates: start: 20110301
  21. SEROQUEL [Suspect]
     Route: 048

REACTIONS (11)
  - PERSECUTORY DELUSION [None]
  - OFF LABEL USE [None]
  - SOMNOLENCE [None]
  - FEAR [None]
  - ASTHENIA [None]
  - DEPRESSED MOOD [None]
  - HALLUCINATION [None]
  - SUICIDAL IDEATION [None]
  - TINNITUS [None]
  - DIZZINESS [None]
  - TREMOR [None]
